FAERS Safety Report 4709889-X (Version None)
Quarter: 2005Q3

REPORT INFORMATION
  Report Type: 
  Country: None (occurrence: None)
  Receive Date: 20050707
  Receipt Date: 20041111
  Transmission Date: 20060218
  Serious: Yes (Other)
  Sender: FDA-Public Use
  Company Number: 2004094205

PATIENT
  Age: 59 Year
  Sex: Female
  Weight: 103 kg

DRUGS (11)
  1. DELTA-CORTEF [Suspect]
     Indication: RHEUMATOID ARTHRITIS
     Dosage: 5 MG (5 MG, 1 IN 1 D)
  2. ETANERCEPT (ETANERCEPT) [Suspect]
     Indication: ANKYLOSING SPONDYLITIS
     Dosage: 25 MG, 2 IN 1 WK, SUBCUTANEOUS
     Route: 058
     Dates: start: 20020401
  3. DICLOFENAC SODIUM [Suspect]
     Indication: RHEUMATOID ARTHRITIS
     Dosage: 50 MG (50 MG, 1 IN 1 D)
  4. BISOPROLOL FUMARATE/HYDROCHLOROTHIAZIDE (BISOPROLOL FUMARATE, HYDROCHL [Suspect]
     Indication: HYPERTENSION
  5. METHOTREXATE [Suspect]
     Indication: ILL-DEFINED DISORDER
     Dates: end: 20040701
  6. FELODIPINE [Suspect]
     Indication: HYPERTENSION
     Dosage: 10 MG (5 MG, 2 IN 1 D)
  7. ALENDRONATE SODIUM [Concomitant]
  8. CALCIUM CARBONATE [Concomitant]
  9. OMEPRAZOLE [Concomitant]
  10. TORSEMIDE [Concomitant]
  11. BETAHISTINE MALEATE [Concomitant]

REACTIONS (6)
  - ALANINE AMINOTRANSFERASE INCREASED [None]
  - ASPARTATE AMINOTRANSFERASE INCREASED [None]
  - CONDITION AGGRAVATED [None]
  - DRUG INTERACTION [None]
  - GAMMA-GLUTAMYLTRANSFERASE INCREASED [None]
  - RHEUMATOID ARTHRITIS [None]
